FAERS Safety Report 7041178-3 (Version None)
Quarter: 2010Q4

REPORT INFORMATION
  Report Type: 
  Country: None (occurrence: None)
  Receive Date: 20101013
  Receipt Date: 20101001
  Transmission Date: 20110411
  Serious: Yes (Death, Life-Threatening, Hospitalization)
  Sender: FDA-Public Use
  Company Number: PT-JNJFOC-20100807293

PATIENT
  Sex: Male
  Weight: 78 kg

DRUGS (14)
  1. REMICADE [Suspect]
     Indication: DACTYLITIS
     Route: 042
  2. REMICADE [Suspect]
     Dosage: 4TH INFUSION
     Route: 042
  3. REMICADE [Suspect]
     Route: 042
  4. REMICADE [Suspect]
     Route: 042
  5. REMICADE [Suspect]
     Indication: ANKYLOSING SPONDYLITIS
     Route: 042
  6. REMICADE [Suspect]
     Route: 042
  7. REMICADE [Suspect]
     Dosage: 4TH INFUSION
     Route: 042
  8. REMICADE [Suspect]
     Route: 042
  9. SIMVASTATIN [Concomitant]
     Indication: HYPERCHOLESTEROLAEMIA
     Route: 048
  10. GLIBENCLAMIDE [Concomitant]
     Indication: DIABETES MELLITUS
     Route: 048
  11. INDAPAMIDE [Concomitant]
     Indication: HYPERTENSION
     Route: 048
  12. DEFLAZACORT [Concomitant]
     Indication: JOINT SWELLING
  13. METFORMIN HYDROCHLORIDE [Concomitant]
     Indication: DIABETES MELLITUS
     Route: 048
  14. CIPROFLOXACIN [Concomitant]
     Indication: URINARY TRACT INFECTION
     Route: 048

REACTIONS (15)
  - ANAEMIA [None]
  - BRONCHITIS [None]
  - CEREBRAL HAEMATOMA [None]
  - CEREBROVASCULAR ACCIDENT [None]
  - DEVICE RELATED SEPSIS [None]
  - FUNGAL TRACHEITIS [None]
  - IGA NEPHROPATHY [None]
  - OROPHARYNGEAL PAIN [None]
  - PNEUMONIA [None]
  - RENAL FAILURE [None]
  - RENAL TUBULAR NECROSIS [None]
  - SEPTIC SHOCK [None]
  - STAPHYLOCOCCAL INFECTION [None]
  - THROMBOCYTOPENIA [None]
  - URINARY TRACT INFECTION [None]
